FAERS Safety Report 7975254-5 (Version None)
Quarter: 2011Q4

REPORT INFORMATION
  Report Type: 
  Country: None (occurrence: None)
  Receive Date: 20111213
  Receipt Date: 20111104
  Transmission Date: 20120403
  Serious: No
  Sender: FDA-Public Use
  Company Number: US-AMGEN-USASP2011057641

PATIENT
  Age: 44 Year
  Sex: Male

DRUGS (4)
  1. CITALOPRAM [Concomitant]
  2. METHOTREXATE [Concomitant]
  3. PROTONIX [Concomitant]
  4. ENBREL [Suspect]
     Indication: PSORIATIC ARTHROPATHY
     Dosage: 50 MG, QWK
     Dates: start: 20110712

REACTIONS (7)
  - CHEST DISCOMFORT [None]
  - SINUSITIS [None]
  - PYREXIA [None]
  - PRODUCTIVE COUGH [None]
  - LUNG DISORDER [None]
  - COUGH [None]
  - INFECTION [None]
